FAERS Safety Report 21579873 (Version 1)
Quarter: 2022Q4

REPORT INFORMATION
  Report Type: Spontaneous
  Country: NL (occurrence: NL)
  Receive Date: 20221110
  Receipt Date: 20221110
  Transmission Date: 20230113
  Serious: Yes (Death, Hospitalization, Other)
  Sender: FDA-Public Use
  Company Number: NL-009507513-2211NLD001583

PATIENT
  Age: 74 Year
  Sex: Male

DRUGS (3)
  1. PEMBROLIZUMAB [Suspect]
     Active Substance: PEMBROLIZUMAB
     Indication: Superficial spreading melanoma stage unspecified
     Dosage: AFTER 27 TREATMENTS, IT WAS TERMINATED
  2. PEMBROLIZUMAB [Suspect]
     Active Substance: PEMBROLIZUMAB
     Indication: Malignant neoplasm progression
  3. PEMBROLIZUMAB [Suspect]
     Active Substance: PEMBROLIZUMAB
     Indication: Metastases to lung

REACTIONS (7)
  - Antiphospholipid syndrome [Fatal]
  - Pleural effusion [Not Recovered/Not Resolved]
  - Adrenal insufficiency [Unknown]
  - Erythema [Recovered/Resolved]
  - Urticaria [Recovered/Resolved]
  - Conjunctivitis [Unknown]
  - Rash [Unknown]
